FAERS Safety Report 6977160-1 (Version None)
Quarter: 2010Q3

REPORT INFORMATION
  Report Type: 
  Country: None (occurrence: None)
  Receive Date: 20100910
  Receipt Date: 20100831
  Transmission Date: 20110219
  Serious: Yes (Other)
  Sender: FDA-Public Use
  Company Number: BR-PFIZER INC-2010104113

PATIENT
  Age: 62 Year
  Sex: Female

DRUGS (5)
  1. CHAMPIX [Suspect]
     Indication: NICOTINE DEPENDENCE
     Dosage: UNK
     Route: 048
     Dates: start: 20100701
  2. CHAMPIX [Suspect]
     Dosage: 1 MG, 1X/DAY
     Route: 048
     Dates: start: 20100817
  3. PHENYTOIN [Concomitant]
     Indication: CONVULSION
     Dosage: 1 TABLET, 2X/DAY
     Dates: start: 20050101
  4. PHENYTOIN [Concomitant]
     Indication: ISCHAEMIA
  5. HIDANTAL [Concomitant]
     Indication: CONVULSION
     Dosage: UNK

REACTIONS (3)
  - DEPRESSION [None]
  - DRUG DISPENSING ERROR [None]
  - MEMORY IMPAIRMENT [None]
